FAERS Safety Report 22235701 (Version 2)
Quarter: 2023Q2

REPORT INFORMATION
  Report Type: Report from Study
  Country: CN (occurrence: CN)
  Receive Date: 20230420
  Receipt Date: 20230502
  Transmission Date: 20230721
  Serious: Yes (Death, Hospitalization)
  Sender: FDA-Public Use
  Company Number: CN-ELI_LILLY_AND_COMPANY-CN202304007815

PATIENT
  Age: 52 Year
  Sex: Female
  Weight: 62 kg

DRUGS (3)
  1. GEMCITABINE HYDROCHLORIDE [Suspect]
     Active Substance: GEMCITABINE HYDROCHLORIDE
     Indication: Pancreatic carcinoma
     Dosage: 1920 MG, CYCLICAL (Q4W, D1, D8, D15)
     Route: 042
     Dates: start: 20220617
  2. PACLITAXEL [Concomitant]
     Active Substance: PACLITAXEL
     Indication: Pancreatic carcinoma
     Dosage: 240 MG, CYCLICAL (Q4W, D1, D8, D15)
     Route: 042
     Dates: start: 20220617
  3. PACLITAXEL [Concomitant]
     Active Substance: PACLITAXEL
     Dosage: 240 MG, CYCLICAL (Q4W, D1, D8, D15)
     Route: 042
     Dates: start: 20220617

REACTIONS (2)
  - Asthenia [Fatal]
  - Diarrhoea [Recovered/Resolved]

NARRATIVE: CASE EVENT DATE: 20220622
